FAERS Safety Report 8837011 (Version 2)
Quarter: 2012Q4

REPORT INFORMATION
  Report Type: 
  Country: ES (occurrence: ES)
  Receive Date: 20121012
  Receipt Date: 20121023
  Transmission Date: 20130627
  Serious: Yes (Other)
  Sender: FDA-Public Use
  Company Number: ES-COVIDIEN/TYCO HEALTHCARE/MALLINCKRODT-T201203580

PATIENT
  Age: 41 Year
  Sex: Female

DRUGS (1)
  1. OPTIRAY 320 [Suspect]
     Indication: IMAGING PROCEDURE
     Dosage: UNK UNK, single
     Route: 042
     Dates: start: 20120821, end: 20120821

REACTIONS (3)
  - Cholestasis [Recovering/Resolving]
  - Pruritus [Recovered/Resolved]
  - Transaminases decreased [Recovered/Resolved]
